FAERS Safety Report 8807358 (Version 1)
Quarter: 2012Q4

REPORT INFORMATION
  Report Type: 
  Country: US (occurrence: US)
  Receive Date: 20120925
  Receipt Date: 20120925
  Transmission Date: 20130627
  Serious: Yes (Death, Congenital Anomaly, Other)
  Sender: FDA-Public Use
  Company Number: US-WATSON-2012-16340

PATIENT

DRUGS (1)
  1. SIMVASTATIN (WATSON LABORATORIES) [Suspect]
     Indication: PRODUCT USED FOR UNKNOWN INDICATION
     Dosage: 20 mg, unknown
     Route: 064

REACTIONS (3)
  - Foetal chromosome abnormality [Fatal]
  - Abortion spontaneous [Fatal]
  - Foetal exposure during pregnancy [Not Recovered/Not Resolved]
